FAERS Safety Report 5869310-5 (Version None)
Quarter: 2008Q3

REPORT INFORMATION
  Report Type: 
  Country: None (occurrence: None)
  Receive Date: 20080828
  Receipt Date: 20080812
  Transmission Date: 20090109
  Serious: Yes (Hospitalization)
  Sender: FDA-Public Use
  Company Number: B0533833A

PATIENT
  Age: 51 Year
  Sex: Female
  Weight: 54.8852 kg

DRUGS (1)
  1. ROPINIROLE HYDROCHLORIDE [Suspect]
     Indication: RESTLESS LEGS SYNDROME

REACTIONS (2)
  - SINUS ARRHYTHMIA [None]
  - SYNCOPE [None]
